FAERS Safety Report 10491125 (Version 1)
Quarter: 2014Q4

REPORT INFORMATION
  Report Type: Spontaneous
  Country: US (occurrence: US)
  Receive Date: 20141002
  Receipt Date: 20141002
  Transmission Date: 20150528
  Serious: No
  Sender: FDA-Public Use
  Company Number: US-GLAXOSMITHKLINE-A1047901A

PATIENT
  Age: 65 Year
  Sex: Male

DRUGS (2)
  1. ADVAIR HFA [Suspect]
     Active Substance: FLUTICASONE PROPIONATE\SALMETEROL XINAFOATE
     Indication: ASTHMA
     Dosage: 2PUFF TWICE PER DAY
     Route: 055
     Dates: start: 201212, end: 2013
  2. MICARDIS [Concomitant]
     Active Substance: TELMISARTAN

REACTIONS (10)
  - Dyspnoea exertional [Unknown]
  - Wheezing [Unknown]
  - Feeling abnormal [Unknown]
  - Personality change [Unknown]
  - Productive cough [Unknown]
  - Pruritus [Unknown]
  - Dyspnoea [Unknown]
  - Pallor [Unknown]
  - Insomnia [Unknown]
  - Ill-defined disorder [Unknown]

NARRATIVE: CASE EVENT DATE: 201301
